FAERS Safety Report 5563713-4 (Version None)
Quarter: 2007Q4

REPORT INFORMATION
  Report Type: 
  Country: None (occurrence: None)
  Receive Date: 20071217
  Receipt Date: 20071207
  Transmission Date: 20080405
  Serious: Yes (Hospitalization)
  Sender: FDA-Public Use
  Company Number: FR-ELI_LILLY_AND_COMPANY-FR200712001742

PATIENT
  Age: 76 Year
  Sex: Female

DRUGS (5)
  1. FORTEO [Suspect]
     Indication: OSTEOPOROSIS
     Dosage: 20 UG, DAILY (1/D)
     Route: 058
     Dates: start: 20061116, end: 20071107
  2. FORTEO [Suspect]
     Dosage: 20 UG, DAILY (1/D)
     Route: 058
     Dates: start: 20071122
  3. TRINITRINE [Concomitant]
     Indication: ANGINA PECTORIS
  4. HYDREA [Concomitant]
     Indication: POLYCYTHAEMIA VERA
     Dosage: 3 D/F, DAILY (1/D)
  5. SINTROM [Concomitant]
     Indication: PHLEBITIS

REACTIONS (7)
  - ASPHYXIA [None]
  - CYSTITIS [None]
  - INTESTINAL OBSTRUCTION [None]
  - PLATELET COUNT INCREASED [None]
  - RED BLOOD CELL COUNT DECREASED [None]
  - RESPIRATORY DISORDER [None]
  - SUFFOCATION FEELING [None]
